FAERS Safety Report 20748645 (Version 1)
Quarter: 2022Q2

REPORT INFORMATION
  Report Type: Spontaneous
  Country: US (occurrence: US)
  Receive Date: 20220426
  Receipt Date: 20220426
  Transmission Date: 20220721
  Serious: Yes (Hospitalization, Other)
  Sender: FDA-Public Use
  Company Number: US-Symogen - AB-2021000031

PATIENT
  Age: 24 Month
  Sex: Male

DRUGS (9)
  1. LEUKINE [Suspect]
     Active Substance: SARGRAMOSTIM
     Indication: Neuroblastoma
     Dosage: CYCLICAL
     Route: 065
  2. UNITUXIN [Suspect]
     Active Substance: DINUTUXIMAB
     Indication: Neuroblastoma
     Dosage: IV 3.5 MG/ML
     Route: 042
  3. VINCRISTINE SULFATE [Suspect]
     Active Substance: VINCRISTINE SULFATE
     Indication: Neuroblastoma
     Dosage: CYCLICAL
     Route: 065
  4. DOXORUBICIN HYDROCHLORIDE [Suspect]
     Active Substance: DOXORUBICIN HYDROCHLORIDE
     Indication: Neuroblastoma
     Dosage: CYCLICAL
     Route: 065
  5. CYCLOPHOSPHAMIDE [Suspect]
     Active Substance: CYCLOPHOSPHAMIDE
     Indication: Neuroblastoma
     Dosage: CYCLICAL
     Route: 065
  6. DEXRAZOXANE [Suspect]
     Active Substance: DEXRAZOXANE
     Indication: Neuroblastoma
     Dosage: CYCLICAL
     Route: 065
  7. MESNA [Suspect]
     Active Substance: MESNA
     Indication: Neuroblastoma
     Dosage: CYCLICAL
     Route: 065
  8. CISPLATIN [Suspect]
     Active Substance: CISPLATIN
     Indication: Neuroblastoma
     Dosage: CYCLICAL
     Route: 065
  9. ETOPOSIDE [Suspect]
     Active Substance: ETOPOSIDE
     Indication: Neuroblastoma
     Dosage: CYCLICAL
     Route: 065

REACTIONS (4)
  - Pyrexia [Unknown]
  - Hypotension [Unknown]
  - Drug hypersensitivity [Unknown]
  - Therapy partial responder [Unknown]
